FAERS Safety Report 24183775 (Version 2)
Quarter: 2024Q3

REPORT INFORMATION
  Report Type: Spontaneous
  Country: AR (occurrence: AR)
  Receive Date: 20240807
  Receipt Date: 20240809
  Transmission Date: 20241017
  Serious: Yes (Other)
  Sender: PFIZER
  Company Number: AR-PFIZER INC-202400230444

PATIENT
  Age: 72 Year
  Sex: Female

DRUGS (1)
  1. IBRANCE [Suspect]
     Active Substance: PALBOCICLIB
     Indication: Breast cancer metastatic
     Dosage: 100 MG, CYCLIC (DAILY, 3X1 SCHEME)
     Dates: start: 20201211

REACTIONS (2)
  - Second primary malignancy [Not Recovered/Not Resolved]
  - Ovarian cancer [Not Recovered/Not Resolved]

NARRATIVE: CASE EVENT DATE: 20240101
